FAERS Safety Report 7397372-5 (Version None)
Quarter: 2011Q2

REPORT INFORMATION
  Report Type: 
  Country: None (occurrence: None)
  Receive Date: 20110406
  Receipt Date: 20110330
  Transmission Date: 20111010
  Serious: Yes (Other)
  Sender: FDA-Public Use
  Company Number: GR-PFIZER INC-2011071290

PATIENT
  Age: 54 Year
  Sex: Female

DRUGS (1)
  1. MEDROL [Suspect]
     Indication: EAR DISCOMFORT
     Dosage: 8 MG (HALF A 16 MG TABLET), 1X/DAY
     Route: 048
     Dates: start: 20110330

REACTIONS (3)
  - VOMITING [None]
  - DYSPNOEA [None]
  - HYPERHIDROSIS [None]
